FAERS Safety Report 6479649-0 (Version None)
Quarter: 2009Q4

REPORT INFORMATION
  Report Type: 
  Country: None (occurrence: None)
  Receive Date: 20091207
  Receipt Date: 20091207
  Transmission Date: 20100525
  Serious: Yes (Hospitalization)
  Sender: FDA-Public Use
  Company Number: None

PATIENT
  Sex: Female
  Weight: 6.78 kg

DRUGS (3)
  1. CARBOPLATIN [Suspect]
     Dosage: 230 MG
  2. METHOTREXATE [Suspect]
     Dosage: 2.5 MG
  3. THIOTEPA [Suspect]
     Dosage: 134 MG

REACTIONS (6)
  - BIOPSY LUNG ABNORMAL [None]
  - CELL-MEDIATED CYTOTOXICITY [None]
  - GENERAL PHYSICAL HEALTH DETERIORATION [None]
  - PULMONARY VENO-OCCLUSIVE DISEASE [None]
  - RESPIRATORY FAILURE [None]
  - TACHYPNOEA [None]
